FAERS Safety Report 20473259 (Version 1)
Quarter: 2022Q1

REPORT INFORMATION
  Report Type: Spontaneous
  Country: GB (occurrence: GB)
  Receive Date: 20220215
  Receipt Date: 20220215
  Transmission Date: 20220423
  Serious: Yes (Hospitalization, Disabling, Other)
  Sender: FDA-Public Use
  Company Number: None

PATIENT
  Age: 70 Year
  Sex: Female

DRUGS (2)
  1. ENBREL [Suspect]
     Active Substance: ETANERCEPT
     Indication: Rheumatoid arthritis
     Dosage: UNK
     Route: 030
     Dates: end: 20220131
  2. PREDNISOLONE [Concomitant]
     Active Substance: PREDNISOLONE
     Indication: Ill-defined disorder
     Dosage: UNK

REACTIONS (15)
  - Autonomic neuropathy [Not Recovered/Not Resolved]
  - Guillain-Barre syndrome [Not Recovered/Not Resolved]
  - Myelitis [Unknown]
  - Urinary retention [Unknown]
  - Diplopia [Unknown]
  - Nausea [Unknown]
  - Vomiting [Unknown]
  - Muscle twitching [Unknown]
  - Muscle contractions involuntary [Unknown]
  - Muscular weakness [Unknown]
  - Sensory loss [Unknown]
  - Dyspnoea [Unknown]
  - Abdominal distension [Unknown]
  - Constipation [Unknown]
  - Off label use [Unknown]

NARRATIVE: CASE EVENT DATE: 20210801
